FAERS Safety Report 20413839 (Version 2)
Quarter: 2022Q1

REPORT INFORMATION
  Report Type: Report from Study
  Country: US (occurrence: US)
  Receive Date: 20220201
  Receipt Date: 20220207
  Transmission Date: 20220423
  Serious: Yes (Other)
  Sender: FDA-Public Use
  Company Number: US-ALXN-A202111441

PATIENT
  Sex: Female

DRUGS (1)
  1. ULTOMIRIS [Suspect]
     Active Substance: RAVULIZUMAB-CWVZ
     Indication: Atypical haemolytic uraemic syndrome
     Route: 065

REACTIONS (8)
  - Seizure [Unknown]
  - Exposure to SARS-CoV-2 [Recovered/Resolved]
  - Laryngitis [Unknown]
  - COVID-19 [Recovering/Resolving]
  - SARS-CoV-2 test positive [Recovering/Resolving]
  - Cough [Unknown]
  - Head discomfort [Unknown]
  - Dizziness [Unknown]

NARRATIVE: CASE EVENT DATE: 20170101
